FAERS Safety Report 5775580-4 (Version None)
Quarter: 2008Q2

REPORT INFORMATION
  Report Type: 
  Country: None (occurrence: None)
  Receive Date: 20080617
  Receipt Date: 20080605
  Transmission Date: 20081010
  Serious: Yes (Hospitalization)
  Sender: FDA-Public Use
  Company Number: FR-PFIZER INC-2008048667

PATIENT
  Sex: Male
  Weight: 60 kg

DRUGS (1)
  1. SU-011,248 [Suspect]
     Indication: RENAL CELL CARCINOMA
     Route: 048

REACTIONS (3)
  - CYTOLYTIC HEPATITIS [None]
  - HYPERBILIRUBINAEMIA [None]
  - RENAL FAILURE [None]
